FAERS Safety Report 11513131 (Version 1)
Quarter: 2015Q3

REPORT INFORMATION
  Report Type: Spontaneous
  Country: US (occurrence: None)
  Receive Date: 20150915
  Receipt Date: 20150915
  Transmission Date: 20151125
  Serious: Yes (Disabling)
  Sender: FDA-Public Use
  Company Number: None

PATIENT
  Age: 28 Year
  Sex: Male
  Weight: 90.72 kg

DRUGS (3)
  1. L-ARGININE [Concomitant]
     Active Substance: ARGININE
  2. PENTOXAFYLLINE [Concomitant]
  3. ADDERALL [Suspect]
     Active Substance: AMPHETAMINE ASPARTATE\AMPHETAMINE SULFATE\DEXTROAMPHETAMINE SACCHARATE\DEXTROAMPHETAMINE SULFATE
     Indication: ATTENTION DEFICIT/HYPERACTIVITY DISORDER
     Dosage: 2 PILLS DAILY
     Route: 048
     Dates: start: 20030101, end: 20150909

REACTIONS (3)
  - Erectile dysfunction [None]
  - Peyronie^s disease [None]
  - Libido disorder [None]

NARRATIVE: CASE EVENT DATE: 20150904
